FAERS Safety Report 5839862-X (Version None)
Quarter: 2008Q3

REPORT INFORMATION
  Report Type: 
  Country: None (occurrence: None)
  Receive Date: 20080811
  Receipt Date: 20080807
  Transmission Date: 20090109
  Serious: Yes (Hospitalization, Other)
  Sender: FDA-Public Use
  Company Number: FR-RB-003021-08

PATIENT
  Age: 47 Year
  Sex: Female

DRUGS (5)
  1. SUBUTEX [Suspect]
     Indication: WITHDRAWAL SYNDROME
     Route: 048
  2. TRAMADOL HCL [Concomitant]
     Indication: DRUG USE FOR UNKNOWN INDICATION
     Dosage: DOSING INFORMATION UNKNOWN
     Dates: end: 20080309
  3. RIFAMPICIN [Concomitant]
     Indication: DRUG USE FOR UNKNOWN INDICATION
     Route: 048
  4. OFLOCET [Concomitant]
     Indication: DRUG USE FOR UNKNOWN INDICATION
     Route: 048
  5. OXAZEPAM [Suspect]
     Indication: DRUG USE FOR UNKNOWN INDICATION
     Route: 048

REACTIONS (6)
  - AMNESIA [None]
  - CONVULSION [None]
  - GRAND MAL CONVULSION [None]
  - INCORRECT ROUTE OF DRUG ADMINISTRATION [None]
  - MEDICATION ERROR [None]
  - WITHDRAWAL SYNDROME [None]
